FAERS Safety Report 11196440 (Version 2)
Quarter: 2015Q2

REPORT INFORMATION
  Report Type: Spontaneous
  Country: JP (occurrence: JP)
  Receive Date: 20150617
  Receipt Date: 20150619
  Transmission Date: 20150821
  Serious: Yes (Hospitalization, Other)
  Sender: FDA-Public Use
  Company Number: JP-UCBSA-2015019270

PATIENT
  Age: 5 Year
  Sex: Male

DRUGS (2)
  1. ETHOSUXIMIDE. [Suspect]
     Active Substance: ETHOSUXIMIDE
     Indication: FRONTAL LOBE EPILEPSY
     Dosage: UNKNOWN DOSE
     Route: 048
  2. KEPPRA [Suspect]
     Active Substance: LEVETIRACETAM
     Indication: FRONTAL LOBE EPILEPSY
     Dosage: UNKNOWN DOSE
     Route: 048

REACTIONS (2)
  - Lupus nephritis [Unknown]
  - Systemic lupus erythematosus [Unknown]
